FAERS Safety Report 16443525 (Version 2)
Quarter: 2019Q2

REPORT INFORMATION
  Report Type: Report from Study
  Country: None (occurrence: BE)
  Receive Date: 20190618
  Receipt Date: 20190621
  Transmission Date: 20190711
  Serious: Yes (Hospitalization)
  Sender: FDA-Public Use
  Company Number: BE-ABBVIE-19S-013-2823960-00

PATIENT
  Sex: Female

DRUGS (8)
  1. REQUIP RETARD [Concomitant]
     Indication: PARKINSON^S DISEASE
     Dosage: 2 MG ONCE DAILY + 4MG, ONCE DAILY+ 8 MG, ONCE DAILY
     Route: 065
  2. PROLOPA HBS 125 [Concomitant]
     Dosage: FORM STRENGTH: 100MG/25MG; RESCUE MEDICATION
     Route: 048
  3. PROLOPA 125 DISP [Concomitant]
     Indication: PARKINSON^S DISEASE
     Dosage: FORM STRENGTH: 100MG/25MG
     Route: 048
  4. PROLOPA 125 DISP [Concomitant]
     Dosage: FORM STRENGTH: 100MG/25MG; RESCUE MEDICATION
     Route: 048
  5. PROLOPA HBS [Concomitant]
     Active Substance: BENSERAZIDE\LEVODOPA
     Indication: PRODUCT USED FOR UNKNOWN INDICATION
     Route: 065
  6. DUODOPA [Suspect]
     Active Substance: CARBIDOPA\LEVODOPA
     Dosage: MD=6ML CD=3.2ML/HR DURING 16HRS ED=1ML
     Route: 050
     Dates: start: 20190222
  7. PROLOPA HBS 125 [Concomitant]
     Indication: PARKINSON^S DISEASE
     Dosage: FORM STRENGTH: 100MG/25MG
     Route: 048
  8. DUODOPA [Suspect]
     Active Substance: CARBIDOPA\LEVODOPA
     Indication: PARKINSON^S DISEASE
     Dosage: MD=5ML CD=3.2ML/HR DURING 16HRS ED=1ML
     Route: 050
     Dates: start: 20190218, end: 20190222

REACTIONS (1)
  - Fall [Recovered/Resolved]

NARRATIVE: CASE EVENT DATE: 2019
